FAERS Safety Report 6003617-6 (Version None)
Quarter: 2008Q4

REPORT INFORMATION
  Report Type: 
  Country: None (occurrence: None)
  Receive Date: 20081216
  Receipt Date: 20081204
  Transmission Date: 20090506
  Serious: Yes (Hospitalization, Other)
  Sender: FDA-Public Use
  Company Number: US-PFIZER INC-2008151994

PATIENT
  Sex: Male
  Weight: 99.773 kg

DRUGS (2)
  1. EXUBERA [Suspect]
     Indication: TYPE 2 DIABETES MELLITUS
     Dates: start: 20060701, end: 20080101
  2. ANTINEOPLASTIC AGENTS [Concomitant]
     Indication: METASTASES TO BONE
     Dosage: UNK
     Route: 048
     Dates: end: 20080101

REACTIONS (3)
  - METASTASES TO CENTRAL NERVOUS SYSTEM [None]
  - PNEUMONIA [None]
  - TRACHEO-OESOPHAGEAL FISTULA [None]
